FAERS Safety Report 6809874-8 (Version None)
Quarter: 2010Q2

REPORT INFORMATION
  Report Type: 
  Country: None (occurrence: None)
  Receive Date: 20100625
  Receipt Date: 20100610
  Transmission Date: 20101027
  Serious: Yes (Other)
  Sender: FDA-Public Use
  Company Number: 2010AL003510

PATIENT
  Age: 11 Year
  Sex: Female

DRUGS (5)
  1. TIZANIDINE HYDROCHLORIDE [Suspect]
     Indication: MUSCLE SPASMS
     Dates: start: 20100222, end: 20100328
  2. BACLOFEN [Concomitant]
  3. GLYCOPYRRONIUM [Concomitant]
  4. MERBENTYL [Concomitant]
  5. CHLORAL HYDRATE [Concomitant]

REACTIONS (1)
  - GASTRITIS HAEMORRHAGIC [None]
